FAERS Safety Report 9332599 (Version 1)
Quarter: 2013Q2

REPORT INFORMATION
  Report Type: Spontaneous
  Country: GB (occurrence: None)
  Receive Date: 20130603
  Receipt Date: 20130603
  Transmission Date: 20140414
  Serious: Yes (Hospitalization)
  Sender: FDA-Public Use
  Company Number: GER/UKI/13/0029741

PATIENT
  Age: 50 Year
  Sex: Female

DRUGS (7)
  1. TERBINAFINE (TERBINAFINE) [Suspect]
     Indication: NAIL INFECTION
     Route: 048
     Dates: start: 20130130, end: 20130203
  2. ATORVASTATIN (ATORVASTATIN) [Concomitant]
  3. INSULIN GLARGINE (INSULIN GLARGINE) [Concomitant]
  4. LANSOPRAZOLE (LANSOPRAZOLE) [Concomitant]
  5. NOVORAPID (INSULIN ASPART) [Concomitant]
  6. RAMIPRIL (RAMIPRIL) [Concomitant]
  7. SERTRALINE (SERTRALINE) (SERTRALINE) [Concomitant]

REACTIONS (3)
  - Rash erythematous [None]
  - Inflammation [None]
  - Rash generalised [None]
